FAERS Safety Report 16771669 (Version 2)
Quarter: 2019Q4

REPORT INFORMATION
  Report Type: Spontaneous
  Country: US (occurrence: US)
  Receive Date: 20190904
  Receipt Date: 20191206
  Transmission Date: 20200122
  Serious: No
  Sender: FDA-Public Use
  Company Number: US-EYEPOINT PHARMACEUTICALS, INC.-US-EYP-19-00069

PATIENT
  Age: 80 Year
  Sex: Female

DRUGS (4)
  1. PREDNISOLONE ACETATE. [Concomitant]
     Active Substance: PREDNISOLONE ACETATE
     Indication: PRODUCT USED FOR UNKNOWN INDICATION
     Route: 065
  2. DEXYCU [Suspect]
     Active Substance: DEXAMETHASONE
     Indication: POST PROCEDURAL INFLAMMATION
     Route: 031
     Dates: start: 20190501
  3. DEXYCU [Suspect]
     Active Substance: DEXAMETHASONE
     Route: 031
     Dates: start: 20190523
  4. ILEVRO [Concomitant]
     Active Substance: NEPAFENAC
     Indication: PRODUCT USED FOR UNKNOWN INDICATION
     Route: 065

REACTIONS (5)
  - Iritis [Unknown]
  - Drug ineffective [Recovering/Resolving]
  - Device dislocation [Recovering/Resolving]
  - Pupillary deformity [Not Recovered/Not Resolved]
  - Iris adhesions [Not Recovered/Not Resolved]

NARRATIVE: CASE EVENT DATE: 20190604
